FAERS Safety Report 8770736 (Version 1)
Quarter: 2012Q4

REPORT INFORMATION
  Report Type: 
  Country: IN (occurrence: IN)
  Receive Date: 20120906
  Receipt Date: 20120906
  Transmission Date: 20130627
  Serious: Yes (Death)
  Sender: FDA-Public Use
  Company Number: IN-PFIZER INC-2012218280

PATIENT
  Age: 61 Year
  Sex: Female

DRUGS (8)
  1. SUTENT [Suspect]
     Indication: METASTATIC RENAL CELL CARCINOMA
     Dosage: 50 mg, 1x/day, 4 weeks on, 2 weeks off
     Route: 048
  2. SUTENT [Suspect]
     Dosage: 37.5 mg, 1x/day, 4 weeks on, 2 weeks off
  3. SUTENT [Suspect]
     Dosage: 25 mg, 1x/day, 4 weeks on, 2 weeks off
  4. ZOLEDRONATE [Concomitant]
     Dosage: 4 mg, monthly
  5. ZOLEDRONATE [Concomitant]
     Dosage: 4 mg, every 3 weeks
  6. SHELCAL [Concomitant]
     Dosage: UNK mg, 2x/day
  7. SHELCAL [Concomitant]
     Dosage: 5 mg, UNK
  8. ONDASETRON [Concomitant]
     Dosage: 8 mg, 2x/day, for 3 days

REACTIONS (5)
  - Death [Fatal]
  - Pain in extremity [Unknown]
  - Muscular weakness [Unknown]
  - Asthenia [Unknown]
  - Haemoglobin decreased [Unknown]
